FAERS Safety Report 25449965 (Version 1)
Quarter: 2025Q2

REPORT INFORMATION
  Report Type: Other
  Country: GB (occurrence: GB)
  Receive Date: 20250618
  Receipt Date: 20250618
  Transmission Date: 20250717
  Serious: Yes (Hospitalization, Other)
  Sender: MACLEODS
  Company Number: GB-MHRA-EMIS-6152-1d29ebc0-08a7-482d-bfbc-e147f73e87e7

PATIENT

DRUGS (7)
  1. ROSUVASTATIN [Suspect]
     Active Substance: ROSUVASTATIN
     Indication: Chronic kidney disease
     Dosage: ONE TO BE TAKEN AT NIGHT
     Route: 065
  2. RAMIPRIL [Concomitant]
     Active Substance: RAMIPRIL
     Indication: Adverse drug reaction
     Dosage: ONE TO BE TAKEN EACH DAY
     Route: 065
     Dates: start: 20250110
  3. ROTIGOTINE [Concomitant]
     Active Substance: ROTIGOTINE
     Indication: Restless legs syndrome
     Dosage: ONE PATCH TO BE APPLIED EACH DAY
     Route: 065
  4. ROTIGOTINE [Concomitant]
     Active Substance: ROTIGOTINE
     Dosage: ONE PATCH TO BE APPLIED EACH DAY
     Route: 065
     Dates: start: 20250310
  5. DOXYCYCLINE [Concomitant]
     Active Substance: DOXYCYCLINE
     Indication: Product used for unknown indication
     Dosage: ONE TO BE TAKEN TWICE A DAY
     Route: 065
  6. GABAPENTIN [Concomitant]
     Active Substance: GABAPENTIN
     Indication: Cellulitis
     Dosage: TWO TO BE TAKEN THREE TIMES A DAY
     Route: 065
     Dates: start: 20250310
  7. TRIMETHOPRIM [Concomitant]
     Active Substance: TRIMETHOPRIM
     Indication: Product used for unknown indication
     Dosage: ONE TO BE TAKEN TWICE A DAY
     Route: 065
     Dates: start: 20250331

REACTIONS (2)
  - Acute kidney injury [Recovering/Resolving]
  - Rhabdomyolysis [Recovering/Resolving]

NARRATIVE: CASE EVENT DATE: 20250403
